FAERS Safety Report 10025175 (Version 1)
Quarter: 2014Q1

REPORT INFORMATION
  Report Type: Spontaneous
  Country: US (occurrence: None)
  Receive Date: 20140319
  Receipt Date: 20140319
  Transmission Date: 20141002
  Serious: Yes (Other)
  Sender: FDA-Public Use
  Company Number: None

PATIENT
  Age: 66 Year
  Sex: Male

DRUGS (1)
  1. MARCAINE [Suspect]
     Indication: SEDATION
     Dates: start: 20140305, end: 20140305

REACTIONS (3)
  - Dyskinesia [None]
  - Anaesthetic complication [None]
  - General anaesthesia [None]
